FAERS Safety Report 12391642 (Version 1)
Quarter: 2016Q2

REPORT INFORMATION
  Report Type: Spontaneous
  Country: US (occurrence: US)
  Receive Date: 20160521
  Receipt Date: 20160521
  Transmission Date: 20160815
  Serious: No
  Sender: FDA-Public Use
  Company Number: US-009507513-1605USA000764

PATIENT
  Age: 20 Year
  Sex: Female
  Weight: 111.57 kg

DRUGS (1)
  1. NEXPLANON [Suspect]
     Active Substance: ETONOGESTREL
     Indication: CONTRACEPTION
     Dosage: 68 MG /THREE YEARS
     Route: 059

REACTIONS (3)
  - Product quality issue [Unknown]
  - Injury [Unknown]
  - Implant site bruising [Unknown]

NARRATIVE: CASE EVENT DATE: 20160415
